FAERS Safety Report 8476260 (Version 2)
Quarter: 2012Q4

REPORT INFORMATION
  Report Type: 
  Country: US (occurrence: US)
  Receive Date: 20120326
  Receipt Date: 20120905
  Transmission Date: 20130627
  Serious: Yes (Other)
  Sender: FDA-Public Use
  Company Number: US-ROCHE-1022382

PATIENT
  Age: 43 None
  Sex: Female
  Weight: 65.83 kg

DRUGS (2)
  1. ACCUTANE [Suspect]
     Indication: ACNE
     Route: 065
     Dates: start: 1995, end: 1996
  2. ASPIRIN [Concomitant]

REACTIONS (2)
  - Crohn^s disease [Unknown]
  - Intestinal obstruction [Unknown]
